FAERS Safety Report 8514274-9 (Version None)
Quarter: 2012Q3

REPORT INFORMATION
  Report Type: 
  Country: None (occurrence: None)
  Receive Date: 20120717
  Receipt Date: 20120713
  Transmission Date: 20120928
  Serious: Yes (Other)
  Sender: FDA-Public Use
  Company Number: US-PFIZER INC-2012169690

PATIENT
  Sex: Female
  Weight: 106 kg

DRUGS (22)
  1. METFORMIN [Concomitant]
     Indication: DIABETES MELLITUS
     Dosage: 500 MG, 2X/DAY
  2. TRAMADOL [Concomitant]
     Dosage: 50 MG, 4X/DAY
  3. VITAMIN B1 TAB [Concomitant]
     Dosage: UNK
  4. ACETYLSALICYLIC ACID [Concomitant]
     Dosage: UNK
  5. BISOPROLOL [Concomitant]
     Indication: CARDIAC DISORDER
     Dosage: 5 MG, DAILY
  6. METHOCARBAMOL [Concomitant]
     Indication: BACK DISORDER
     Dosage: 75 MG, DAILY
  7. LEVOTHYROXINE [Concomitant]
     Indication: HYPOTHYROIDISM
     Dosage: 137 UG, DAILY
  8. OMEPRAZOLE [Concomitant]
     Indication: GASTROOESOPHAGEAL REFLUX DISEASE
     Dosage: 40 MG, 2X/DAY
  9. VITAMIN E [Concomitant]
     Dosage: UNK
  10. FISH OIL [Concomitant]
     Dosage: UNK
  11. IRON [Concomitant]
     Dosage: UNK
  12. LASIX [Concomitant]
     Dosage: 80 MG, UNK
  13. METHOCARBAMOL [Concomitant]
     Indication: MUSCLE SPASMS
  14. VITAMIN B-12 [Concomitant]
     Dosage: UNK
  15. POTASSIUM [Concomitant]
     Dosage: UNK
  16. MAGNESIUM [Concomitant]
     Dosage: 250 MG, UNK
  17. SYMBICORT [Concomitant]
     Indication: ASTHMA
     Dosage: 160/4.5 UG, DAILY
  18. LIPITOR [Suspect]
     Indication: BLOOD CHOLESTEROL INCREASED
     Dosage: 40 MG, DAILY
  19. CYMBALTA [Suspect]
     Indication: DEPRESSION
     Dosage: 60 MG, DAILY
  20. MULTI-VITAMINS [Concomitant]
     Dosage: UNK
  21. ZETIA [Concomitant]
     Dosage: 5 MG, DAILY
  22. LOSARTAN [Concomitant]
     Indication: BLOOD PRESSURE ABNORMAL
     Dosage: UNK, DAILY

REACTIONS (2)
  - DRUG INEFFECTIVE [None]
  - HEPATIC CIRRHOSIS [None]
